FAERS Safety Report 8594727-8 (Version None)
Quarter: 2012Q3

REPORT INFORMATION
  Report Type: 
  Country: None (occurrence: None)
  Receive Date: 20120801
  Receipt Date: 20120717
  Transmission Date: 20120928
  Serious: Yes (Other)
  Sender: FDA-Public Use
  Company Number: FK201202049

PATIENT
  Age: 46 Year
  Sex: Male

DRUGS (1)
  1. IRINOTECAN HCL [Suspect]
     Indication: RECTAL CANCER METASTATIC
     Dosage: 350 MG/M2, 3-WEEKLY, INTRAVENOUS (NOT OTHERWISE SPECIFIED)
     Route: 042

REACTIONS (7)
  - DYSARTHRIA [None]
  - COORDINATION ABNORMAL [None]
  - SPEECH DISORDER [None]
  - TONGUE DISORDER [None]
  - ALOPECIA [None]
  - DISEASE PROGRESSION [None]
  - FINE MOTOR DELAY [None]
